FAERS Safety Report 15727744 (Version 6)
Quarter: 2021Q2

REPORT INFORMATION
  Report Type: Spontaneous
  Country: US (occurrence: US)
  Receive Date: 20181217
  Receipt Date: 20210524
  Transmission Date: 20210716
  Serious: Yes (Other)
  Sender: FDA-Public Use
  Company Number: US-PFIZER INC-2018509722

PATIENT
  Age: 14 Year
  Sex: Male
  Weight: 39 kg

DRUGS (4)
  1. GENOTROPIN [Suspect]
     Active Substance: SOMATROPIN
     Indication: GROWTH HORMONE DEFICIENCY
     Dosage: 0.6 MG, ONCE DAILY
     Route: 058
  2. GENOTROPIN [Suspect]
     Active Substance: SOMATROPIN
     Dosage: 1.6 MG, DAILY
     Dates: start: 20181111
  3. GENOTROPIN [Suspect]
     Active Substance: SOMATROPIN
     Dosage: 3.8 MG, DAILY
     Dates: start: 201811
  4. GENOTROPIN [Suspect]
     Active Substance: SOMATROPIN
     Dosage: 2 MG, ONCE DAILY
     Route: 058

REACTIONS (8)
  - Device issue [Unknown]
  - Device delivery system issue [Unknown]
  - Pain [Recovered/Resolved]
  - Overdose [Unknown]
  - Drug dose omission by device [Unknown]
  - Device leakage [Unknown]
  - Joint effusion [Unknown]
  - Device use issue [Unknown]
